FAERS Safety Report 5633619-0 (Version None)
Quarter: 2008Q1

REPORT INFORMATION
  Report Type: 
  Country: None (occurrence: None)
  Receive Date: 20080221
  Receipt Date: 20080219
  Transmission Date: 20080703
  Serious: Yes (Death)
  Sender: FDA-Public Use
  Company Number: JP-ASTRAZENECA-2008AP00236

PATIENT
  Age: 26376 Day
  Sex: Male
  Weight: 48 kg

DRUGS (5)
  1. IRESSA [Suspect]
     Indication: LUNG ADENOCARCINOMA
     Route: 048
     Dates: start: 20071214, end: 20071226
  2. LOXONIN [Concomitant]
     Indication: BACK PAIN
     Route: 048
     Dates: start: 20070209, end: 20080101
  3. MUCOSTA [Concomitant]
     Indication: GASTRITIS
     Route: 048
     Dates: start: 20070209, end: 20080101
  4. THIOLA [Concomitant]
     Route: 048
     Dates: end: 20080101
  5. URDESTON [Concomitant]
     Route: 048
     Dates: end: 20080101

REACTIONS (1)
  - INTERSTITIAL LUNG DISEASE [None]
